FAERS Safety Report 14596025 (Version 5)
Quarter: 2018Q1

REPORT INFORMATION
  Report Type: Report from Study
  Country: US (occurrence: US)
  Receive Date: 20180303
  Receipt Date: 20180321
  Transmission Date: 20180509
  Serious: No
  Sender: FDA-Public Use
  Company Number: PHEH2018US008717

PATIENT
  Age: 68 Year
  Sex: Female

DRUGS (1)
  1. COSENTYX [Suspect]
     Active Substance: SECUKINUMAB
     Indication: PSORIASIS
     Dosage: 150 MG, QW
     Route: 058
     Dates: start: 20171201

REACTIONS (6)
  - Rash [Unknown]
  - Psoriasis [Unknown]
  - Skin haemorrhage [Unknown]
  - Pruritus [Unknown]
  - Sunburn [Unknown]
  - Skin disorder [Unknown]

NARRATIVE: CASE EVENT DATE: 20180308
